FAERS Safety Report 8820633 (Version 1)
Quarter: 2012Q4

REPORT INFORMATION
  Report Type: Report from Study
  Country: CA (occurrence: CA)
  Receive Date: 20121002
  Receipt Date: 20121002
  Transmission Date: 20130627
  Serious: Yes (Hospitalization)
  Sender: FDA-Public Use
  Company Number: CA-JNJFOC-20120910836

PATIENT
  Sex: Female
  Weight: 84 kg

DRUGS (10)
  1. REMICADE [Suspect]
     Indication: CROHN^S DISEASE
     Route: 042
  2. HYDROMORPH CONTIN [Concomitant]
     Route: 065
  3. AMITRIPTYLINE [Concomitant]
     Route: 065
  4. RABEPRAZOLE [Concomitant]
     Route: 065
  5. HYDROMORPHONE [Concomitant]
     Route: 065
  6. CHAMPIX [Concomitant]
     Route: 065
  7. IRON [Concomitant]
     Route: 065
  8. CLONAZEPAM [Concomitant]
     Route: 065
  9. ONDANSETRON [Concomitant]
     Route: 065
  10. DOCUSATE [Concomitant]
     Route: 065

REACTIONS (3)
  - Pulmonary oedema [Unknown]
  - Cardiomegaly [Unknown]
  - Myocardial infarction [Unknown]
